FAERS Safety Report 9632374 (Version 1)
Quarter: 2013Q4

REPORT INFORMATION
  Report Type: Spontaneous
  Country: US (occurrence: US)
  Receive Date: 20131018
  Receipt Date: 20131018
  Transmission Date: 20140711
  Serious: No
  Sender: FDA-Public Use
  Company Number: US-BAYER-2013-125248

PATIENT
  Sex: Female

DRUGS (2)
  1. ALEVE CAPLET [Suspect]
     Indication: MIGRAINE
     Dosage: TAB
     Route: 048
  2. IMITREX [Concomitant]
     Indication: MIGRAINE

REACTIONS (1)
  - Therapeutic response unexpected [None]
